FAERS Safety Report 10034425 (Version 1)
Quarter: 2014Q1

REPORT INFORMATION
  Report Type: Spontaneous
  Country: US (occurrence: None)
  Receive Date: 20140321
  Receipt Date: 20140321
  Transmission Date: 20141002
  Serious: Yes (Other)
  Sender: FDA-Public Use
  Company Number: UTC-046262

PATIENT
  Age: 58 Year
  Sex: Female
  Weight: 49.44 kg

DRUGS (1)
  1. REMODULIN [Suspect]
     Indication: PULMONARY ARTERIAL HYPERTENSION
     Route: 041
     Dates: start: 20121031

REACTIONS (2)
  - Lung operation [None]
  - Pulmonary thrombosis [None]
